FAERS Safety Report 12792420 (Version 5)
Quarter: 2017Q2

REPORT INFORMATION
  Report Type: Spontaneous
  Country: US (occurrence: US)
  Receive Date: 20160929
  Receipt Date: 20170511
  Transmission Date: 20170830
  Serious: Yes (Other)
  Sender: FDA-Public Use
  Company Number: US-JNJFOC-20160918002

PATIENT
  Sex: Male

DRUGS (65)
  1. RISPERDAL [Suspect]
     Active Substance: RISPERIDONE
     Indication: ABNORMAL BEHAVIOUR
     Route: 048
  2. RISPERDAL [Suspect]
     Active Substance: RISPERIDONE
     Indication: ABNORMAL BEHAVIOUR
     Route: 048
     Dates: start: 200804
  3. RISPERDAL [Suspect]
     Active Substance: RISPERIDONE
     Indication: AUTISM SPECTRUM DISORDER
     Route: 048
     Dates: start: 200604, end: 200604
  4. RISPERDAL [Suspect]
     Active Substance: RISPERIDONE
     Indication: AUTISM SPECTRUM DISORDER
     Route: 048
     Dates: start: 201007
  5. RISPERDAL [Suspect]
     Active Substance: RISPERIDONE
     Indication: ABNORMAL BEHAVIOUR
     Route: 048
     Dates: start: 200611, end: 200710
  6. RISPERDAL [Suspect]
     Active Substance: RISPERIDONE
     Indication: ABNORMAL BEHAVIOUR
     Route: 048
     Dates: start: 201212, end: 201409
  7. RISPERDAL [Suspect]
     Active Substance: RISPERIDONE
     Indication: ABNORMAL BEHAVIOUR
     Route: 048
     Dates: start: 200604, end: 200604
  8. RISPERDAL [Suspect]
     Active Substance: RISPERIDONE
     Indication: ABNORMAL BEHAVIOUR
     Route: 048
     Dates: start: 200312, end: 200501
  9. RISPERDAL [Suspect]
     Active Substance: RISPERIDONE
     Indication: ABNORMAL BEHAVIOUR
     Route: 048
     Dates: start: 200307, end: 200312
  10. RISPERDAL [Suspect]
     Active Substance: RISPERIDONE
     Indication: AUTISM SPECTRUM DISORDER
     Route: 048
     Dates: start: 200611, end: 200710
  11. RISPERDAL [Suspect]
     Active Substance: RISPERIDONE
     Indication: AUTISM SPECTRUM DISORDER
     Route: 048
     Dates: start: 201212, end: 201409
  12. RISPERDAL [Suspect]
     Active Substance: RISPERIDONE
     Indication: AUTISM SPECTRUM DISORDER
     Route: 048
     Dates: start: 201207
  13. RISPERDAL [Suspect]
     Active Substance: RISPERIDONE
     Indication: HYPERTENSION
     Route: 048
     Dates: start: 201007
  14. RISPERDAL [Suspect]
     Active Substance: RISPERIDONE
     Indication: HYPERTENSION
     Route: 048
     Dates: end: 200912
  15. RISPERDAL [Suspect]
     Active Substance: RISPERIDONE
     Indication: HYPERTENSION
     Route: 048
     Dates: start: 200307, end: 200312
  16. RISPERDAL [Suspect]
     Active Substance: RISPERIDONE
     Indication: HYPERTENSION
     Route: 048
     Dates: start: 201212, end: 201409
  17. RISPERIDONE. [Suspect]
     Active Substance: RISPERIDONE
     Indication: ABNORMAL BEHAVIOUR
     Route: 048
     Dates: start: 201007, end: 201206
  18. RISPERDAL [Suspect]
     Active Substance: RISPERIDONE
     Indication: AUTISM SPECTRUM DISORDER
     Route: 048
     Dates: start: 200307, end: 200312
  19. RISPERDAL [Suspect]
     Active Substance: RISPERIDONE
     Indication: AUTISM SPECTRUM DISORDER
     Route: 048
     Dates: start: 200605, end: 200610
  20. RISPERDAL [Suspect]
     Active Substance: RISPERIDONE
     Indication: HYPERTENSION
     Route: 048
     Dates: end: 200805
  21. RISPERIDONE. [Suspect]
     Active Substance: RISPERIDONE
     Indication: ABNORMAL BEHAVIOUR
     Route: 048
     Dates: start: 200807, end: 200912
  22. RISPERIDONE. [Suspect]
     Active Substance: RISPERIDONE
     Indication: PRODUCT USED FOR UNKNOWN INDICATION
     Route: 048
  23. RISPERDAL [Suspect]
     Active Substance: RISPERIDONE
     Indication: ABNORMAL BEHAVIOUR
     Route: 048
     Dates: start: 200605, end: 200610
  24. RISPERDAL [Suspect]
     Active Substance: RISPERIDONE
     Indication: ABNORMAL BEHAVIOUR
     Route: 048
     Dates: start: 200502, end: 200509
  25. RISPERDAL [Suspect]
     Active Substance: RISPERIDONE
     Indication: ABNORMAL BEHAVIOUR
     Route: 048
     Dates: start: 201001
  26. RISPERDAL [Suspect]
     Active Substance: RISPERIDONE
     Indication: AUTISM SPECTRUM DISORDER
     Route: 048
     Dates: start: 200109, end: 200301
  27. RISPERDAL [Suspect]
     Active Substance: RISPERIDONE
     Indication: AUTISM SPECTRUM DISORDER
     Route: 048
     Dates: start: 200302, end: 200306
  28. RISPERDAL [Suspect]
     Active Substance: RISPERIDONE
     Indication: AUTISM SPECTRUM DISORDER
     Route: 048
     Dates: start: 200312, end: 200501
  29. RISPERDAL [Suspect]
     Active Substance: RISPERIDONE
     Indication: AUTISM SPECTRUM DISORDER
     Route: 048
     Dates: start: 200502, end: 200509
  30. RISPERDAL [Suspect]
     Active Substance: RISPERIDONE
     Indication: AUTISM SPECTRUM DISORDER
     Route: 048
     Dates: start: 201001
  31. RISPERDAL [Suspect]
     Active Substance: RISPERIDONE
     Indication: HYPERTENSION
     Route: 048
  32. RISPERDAL [Suspect]
     Active Substance: RISPERIDONE
     Indication: HYPERTENSION
     Route: 048
     Dates: start: 200611, end: 200710
  33. RISPERIDONE. [Suspect]
     Active Substance: RISPERIDONE
     Indication: ABNORMAL BEHAVIOUR
     Route: 048
     Dates: start: 201001, end: 201006
  34. VALPROIC ACID. [Suspect]
     Active Substance: VALPROIC ACID
     Indication: PRODUCT USED FOR UNKNOWN INDICATION
     Route: 065
     Dates: start: 200006, end: 200201
  35. RISPERDAL [Suspect]
     Active Substance: RISPERIDONE
     Indication: ABNORMAL BEHAVIOUR
     Route: 048
     Dates: start: 200302, end: 200306
  36. RISPERDAL [Suspect]
     Active Substance: RISPERIDONE
     Indication: ABNORMAL BEHAVIOUR
     Route: 048
     Dates: end: 200912
  37. RISPERDAL [Suspect]
     Active Substance: RISPERIDONE
     Indication: ABNORMAL BEHAVIOUR
     Route: 048
     Dates: end: 200806
  38. RISPERDAL [Suspect]
     Active Substance: RISPERIDONE
     Indication: ABNORMAL BEHAVIOUR
     Route: 048
     Dates: start: 201007
  39. RISPERDAL [Suspect]
     Active Substance: RISPERIDONE
     Indication: ABNORMAL BEHAVIOUR
     Route: 048
     Dates: start: 201207
  40. RISPERDAL [Suspect]
     Active Substance: RISPERIDONE
     Indication: AUTISM SPECTRUM DISORDER
     Route: 048
     Dates: end: 200912
  41. RISPERDAL [Suspect]
     Active Substance: RISPERIDONE
     Indication: HYPERTENSION
     Route: 048
     Dates: start: 200302, end: 200306
  42. RISPERDAL [Suspect]
     Active Substance: RISPERIDONE
     Indication: HYPERTENSION
     Route: 048
     Dates: start: 200312, end: 200501
  43. PHENOBARBITAL. [Concomitant]
     Active Substance: PHENOBARBITAL
     Indication: PRODUCT USED FOR UNKNOWN INDICATION
     Route: 065
     Dates: start: 200004, end: 200508
  44. RISPERDAL [Suspect]
     Active Substance: RISPERIDONE
     Indication: ABNORMAL BEHAVIOUR
     Route: 048
     Dates: start: 201007, end: 201203
  45. RISPERDAL [Suspect]
     Active Substance: RISPERIDONE
     Indication: AUTISM SPECTRUM DISORDER
     Route: 048
     Dates: end: 200805
  46. RISPERDAL [Suspect]
     Active Substance: RISPERIDONE
     Indication: HYPERTENSION
     Route: 048
     Dates: start: 200109, end: 200301
  47. RISPERDAL [Suspect]
     Active Substance: RISPERIDONE
     Indication: HYPERTENSION
     Route: 048
     Dates: start: 200502, end: 200509
  48. RISPERDAL [Suspect]
     Active Substance: RISPERIDONE
     Indication: HYPERTENSION
     Route: 048
     Dates: start: 200605, end: 200610
  49. RISPERDAL [Suspect]
     Active Substance: RISPERIDONE
     Indication: HYPERTENSION
     Route: 048
     Dates: start: 201007, end: 201203
  50. RISPERIDONE. [Suspect]
     Active Substance: RISPERIDONE
     Indication: ABNORMAL BEHAVIOUR
     Route: 048
     Dates: start: 201304, end: 201407
  51. RISPERIDONE. [Suspect]
     Active Substance: RISPERIDONE
     Indication: ABNORMAL BEHAVIOUR
     Route: 048
     Dates: start: 201408
  52. RISPERDAL [Suspect]
     Active Substance: RISPERIDONE
     Indication: ABNORMAL BEHAVIOUR
     Route: 048
     Dates: start: 200109, end: 200301
  53. RISPERDAL [Suspect]
     Active Substance: RISPERIDONE
     Indication: ABNORMAL BEHAVIOUR
     Route: 048
     Dates: end: 200805
  54. RISPERDAL [Suspect]
     Active Substance: RISPERIDONE
     Indication: AUTISM SPECTRUM DISORDER
     Route: 048
     Dates: end: 200806
  55. RISPERDAL [Suspect]
     Active Substance: RISPERIDONE
     Indication: HYPERTENSION
     Route: 048
     Dates: start: 200604, end: 200604
  56. RISPERIDONE. [Suspect]
     Active Substance: RISPERIDONE
     Indication: ABNORMAL BEHAVIOUR
     Route: 048
     Dates: start: 201007
  57. RISPERIDONE. [Suspect]
     Active Substance: RISPERIDONE
     Indication: ABNORMAL BEHAVIOUR
     Route: 048
     Dates: start: 201207, end: 201212
  58. RISPERDAL [Suspect]
     Active Substance: RISPERIDONE
     Indication: AUTISM SPECTRUM DISORDER
     Route: 048
  59. RISPERDAL [Suspect]
     Active Substance: RISPERIDONE
     Indication: AUTISM SPECTRUM DISORDER
     Route: 048
     Dates: start: 201007, end: 201203
  60. RISPERDAL [Suspect]
     Active Substance: RISPERIDONE
     Indication: AUTISM SPECTRUM DISORDER
     Route: 048
     Dates: start: 200804
  61. RISPERDAL [Suspect]
     Active Substance: RISPERIDONE
     Indication: HYPERTENSION
     Route: 048
     Dates: end: 200806
  62. RISPERDAL [Suspect]
     Active Substance: RISPERIDONE
     Indication: HYPERTENSION
     Route: 048
     Dates: start: 200804
  63. RISPERDAL [Suspect]
     Active Substance: RISPERIDONE
     Indication: HYPERTENSION
     Route: 048
     Dates: start: 201001
  64. RISPERDAL [Suspect]
     Active Substance: RISPERIDONE
     Indication: HYPERTENSION
     Route: 048
     Dates: start: 201207
  65. RISPERIDONE. [Suspect]
     Active Substance: RISPERIDONE
     Indication: ABNORMAL BEHAVIOUR
     Route: 048
     Dates: start: 201212, end: 201303

REACTIONS (3)
  - Gynaecomastia [Unknown]
  - Obesity [Unknown]
  - Akathisia [Unknown]

NARRATIVE: CASE EVENT DATE: 2002
